FAERS Safety Report 8807580 (Version 1)
Quarter: 2012Q4

REPORT INFORMATION
  Report Type: 
  Country: US (occurrence: US)
  Receive Date: 20120925
  Receipt Date: 20120925
  Transmission Date: 20130627
  Serious: Yes (Other)
  Sender: FDA-Public Use
  Company Number: US-JNJFOC-20120908669

PATIENT
  Age: 74 Year
  Sex: Female
  Weight: 63.5 kg

DRUGS (8)
  1. ZYRTEC-D [Suspect]
     Indication: HYPERSENSITIVITY
     Route: 048
  2. ZYRTEC-D [Suspect]
     Indication: HYPERSENSITIVITY
     Route: 048
  3. ZYRTEC [Suspect]
     Route: 048
  4. ZYRTEC [Suspect]
     Indication: HYPERSENSITIVITY
     Route: 048
  5. BABY ASPIRIN [Concomitant]
     Route: 065
  6. CALCIUM [Concomitant]
     Route: 065
  7. MULTIPLE VITAMIN [Concomitant]
     Route: 065
  8. LIPITOR [Concomitant]
     Indication: BLOOD CHOLESTEROL
     Route: 065

REACTIONS (2)
  - Sinus disorder [Unknown]
  - Wrong drug administered [Unknown]
